FAERS Safety Report 7347878-X (Version None)
Quarter: 2011Q1

REPORT INFORMATION
  Report Type: 
  Country: None (occurrence: None)
  Receive Date: 20110311
  Receipt Date: 20110302
  Transmission Date: 20110831
  Serious: Yes (Hospitalization)
  Sender: FDA-Public Use
  Company Number: CA-ASTRAZENECA-2011SE11836

PATIENT
  Age: 63 Year
  Sex: Male

DRUGS (3)
  1. WARFARIN [Concomitant]
  2. CRESTOR [Suspect]
     Indication: HYPERCHOLESTEROLAEMIA
     Route: 048
     Dates: start: 20101115, end: 20110101
  3. BLOOD PRESSURE MEDICATION [Concomitant]

REACTIONS (1)
  - RENAL TUBULAR NECROSIS [None]
